FAERS Safety Report 5267463-3 (Version None)
Quarter: 2007Q1

REPORT INFORMATION
  Report Type: 
  Country: None (occurrence: None)
  Receive Date: 20070316
  Receipt Date: 20070306
  Transmission Date: 20070707
  Serious: Yes (Disabling)
  Sender: FDA-Public Use
  Company Number: A20070050

PATIENT
  Age: 53 Year
  Sex: Male
  Weight: 55 kg

DRUGS (8)
  1. FEIBA VH IMMUNO [Suspect]
     Indication: FACTOR VIII DEFICIENCY
     Route: 042
     Dates: start: 20060805, end: 20060805
  2. FEIBA VH IMMUNO [Suspect]
     Indication: HAEMATOMA
     Route: 042
     Dates: start: 20060805, end: 20060805
  3. FEIBA VH IMMUNO [Suspect]
     Route: 042
     Dates: start: 20060806, end: 20060806
  4. FEIBA VH IMMUNO [Suspect]
     Route: 042
     Dates: start: 20060806, end: 20060806
  5. NOVOSEVEN [Concomitant]
     Indication: HAEMATOMA
     Route: 042
     Dates: start: 20060805, end: 20060805
  6. NOVOSEVEN [Concomitant]
     Dates: start: 20060807, end: 20060807
  7. CEFAMEZIN [Concomitant]
     Indication: ILEUS
     Dosage: DOSE UNIT:
     Route: 048
     Dates: start: 20060805, end: 20060808
  8. OMEPRAL [Concomitant]
     Indication: PROPHYLAXIS AGAINST GASTROINTESTINAL ULCER
     Route: 048
     Dates: start: 20060805, end: 20060808

REACTIONS (3)
  - ABDOMINAL PAIN [None]
  - DISSEMINATED INTRAVASCULAR COAGULATION [None]
  - PLATELET COUNT DECREASED [None]
